FAERS Safety Report 6641529-5 (Version None)
Quarter: 2010Q1

REPORT INFORMATION
  Report Type: 
  Country: None (occurrence: None)
  Receive Date: 20100317
  Receipt Date: 20100317
  Transmission Date: 20100710
  Serious: Yes (Other)
  Sender: FDA-Public Use
  Company Number: None

PATIENT
  Age: 9 Year
  Sex: Male
  Weight: 43.5 kg

DRUGS (2)
  1. ONDANSETRON [Suspect]
     Indication: NAUSEA
     Dosage: 4MG ONCE IV
     Route: 042
     Dates: start: 20091220, end: 20091220
  2. ONDANSETRON [Suspect]
     Indication: VOMITING
     Dosage: 4MG ONCE IV
     Route: 042
     Dates: start: 20091220, end: 20091220

REACTIONS (1)
  - URTICARIA [None]
